FAERS Safety Report 23850695 (Version 1)
Quarter: 2024Q2

REPORT INFORMATION
  Report Type: Spontaneous
  Country: IL (occurrence: IL)
  Receive Date: 20240513
  Receipt Date: 20240513
  Transmission Date: 20240715
  Serious: Yes (Hospitalization)
  Sender: FDA-Public Use
  Company Number: IL-BoehringerIngelheim-2024-BI-026636

PATIENT
  Age: 57 Year
  Sex: Male

DRUGS (2)
  1. JARDIANCE [Suspect]
     Active Substance: EMPAGLIFLOZIN
     Indication: Diabetes mellitus
     Dates: start: 2021
  2. Soliqna [Concomitant]
     Indication: Product used for unknown indication

REACTIONS (4)
  - Diabetic ketoacidosis [Not Recovered/Not Resolved]
  - Vomiting [Recovered/Resolved]
  - Viral infection [Unknown]
  - Dehydration [Unknown]
